FAERS Safety Report 18640736 (Version 3)
Quarter: 2021Q3

REPORT INFORMATION
  Report Type: Other
  Country: CA (occurrence: CA)
  Receive Date: 20201221
  Receipt Date: 20210702
  Transmission Date: 20211014
  Serious: Yes (Other)
  Sender: FDA-Public Use
  Company Number: CA-CELLTRION INC.-2020CA033819

PATIENT

DRUGS (27)
  1. BUDESONIDE/FORMOTEROL [Concomitant]
     Active Substance: BUDESONIDE\FORMOTEROL
     Dosage: UNK,  2 EVERY 1 DAYS
     Route: 050
  2. BISOPROLOL FUMARATE. [Concomitant]
     Active Substance: BISOPROLOL FUMARATE
     Dosage: 5 MG, 1 EVERY 1 DAY
     Route: 065
  3. BRIMONIDINE TARTRATE/TIMOLOL MALEATE [Concomitant]
     Active Substance: BRIMONIDINE TARTRATE\TIMOLOL MALEATE
  4. FUROSEMIDE. [Concomitant]
     Active Substance: FUROSEMIDE
     Indication: PRODUCT USED FOR UNKNOWN INDICATION
     Dosage: 40 MG, 1 EVERY 1 DAYS
     Route: 048
  5. HYDROXYCHLOROQUINE [Concomitant]
     Active Substance: HYDROXYCHLOROQUINE
  6. METHYLPREDNISOLONE SODIUM SUCCINATE. [Concomitant]
     Active Substance: METHYLPREDNISOLONE SODIUM SUCCINATE
     Indication: PREMEDICATION
     Dosage: 100 MG
     Route: 042
  7. SPIRIVA [Concomitant]
     Active Substance: TIOTROPIUM BROMIDE MONOHYDRATE
     Dosage: UNK, 1 EVERY 1 DAYS
     Route: 065
  8. BUDESONIDE. [Concomitant]
     Active Substance: BUDESONIDE
     Route: 065
  9. ORENCIA [Concomitant]
     Active Substance: ABATACEPT
     Dosage: 125 MG, 1 EVERY 1 WEEK
     Route: 065
  10. RITUXIMAB (UNKNOWN) [Suspect]
     Active Substance: RITUXIMAB
     Indication: RHEUMATOID ARTHRITIS
     Dosage: 1000 MG, 1 EVERY 15 DAYS
     Route: 042
  11. ALLOPURINOL. [Concomitant]
     Active Substance: ALLOPURINOL
     Indication: PRODUCT USED FOR UNKNOWN INDICATION
     Dosage: 200 MG, 1 EVERY 1 DAYS
     Route: 065
  12. BENADRYL [Concomitant]
     Active Substance: DIPHENHYDRAMINE HYDROCHLORIDE
     Indication: PREMEDICATION
     Dosage: 50 MG
     Route: 048
  13. LANSOPRAZOLE. [Concomitant]
     Active Substance: LANSOPRAZOLE
  14. LUMIGAN [Concomitant]
     Active Substance: BIMATOPROST
  15. MYCOPHENOLATE SODIUM [Concomitant]
     Active Substance: MYCOPHENOLATE SODIUM
     Route: 065
  16. PERINDOPRIL [Concomitant]
     Active Substance: PERINDOPRIL
     Dosage: 2 MG, 1 EVERY 1 DAYS
     Route: 048
  17. PLAQUENIL [Concomitant]
     Active Substance: HYDROXYCHLOROQUINE SULFATE
     Dosage: 200 MG
     Route: 065
  18. AZOPT [Concomitant]
     Active Substance: BRINZOLAMIDE
  19. DABIGATRAN ETEXILATE MESILATE [Concomitant]
     Active Substance: DABIGATRAN ETEXILATE MESYLATE
  20. POTASSIUM CHLORIDE. [Concomitant]
     Active Substance: POTASSIUM CHLORIDE
  21. MIDODRINE [Concomitant]
     Active Substance: MIDODRINE
     Dosage: 2.5 MG, 3 EVERY 1 DAY
     Route: 065
  22. OLODATEROL HYDROCHLORIDE/TIOTROPIUM BROMIDE MONOHYDRATE [Concomitant]
     Active Substance: OLODATEROL HYDROCHLORIDE\TIOTROPIUM BROMIDE MONOHYDRATE
  23. PREVACID [Concomitant]
     Active Substance: LANSOPRAZOLE
     Dosage: 30 MG, 1 EVERY 1 DAYS
     Route: 048
  24. ROSUVASTATIN CALCIUM. [Concomitant]
     Active Substance: ROSUVASTATIN CALCIUM
     Dosage: 20 MG, 1 EVERY 1 DAYS
     Route: 048
  25. TYLENOL [Concomitant]
     Active Substance: ACETAMINOPHEN
     Indication: PREMEDICATION
     Dosage: 650 MG
     Route: 048
  26. CHOLESTYRAMINE. [Concomitant]
     Active Substance: CHOLESTYRAMINE
     Dosage: 4 G, 2 EVERY 1 DAUS
     Route: 048
  27. TYLENOL [Concomitant]
     Active Substance: ACETAMINOPHEN
     Indication: PREMEDICATION
     Dosage: 1000 MG
     Route: 048

REACTIONS (13)
  - Diarrhoea [Recovered/Resolved]
  - Joint swelling [Recovered/Resolved]
  - Rotator cuff syndrome [Recovered/Resolved]
  - Gout [Recovered/Resolved]
  - Hypotension [Recovered/Resolved]
  - Dupuytren^s contracture [Recovered/Resolved]
  - Bursitis [Recovered/Resolved]
  - Pain in extremity [Recovered/Resolved]
  - Off label use [Unknown]
  - Iron deficiency [Recovered/Resolved]
  - Joint range of motion decreased [Recovered/Resolved]
  - Arthralgia [Recovered/Resolved]
  - Weight decreased [Recovered/Resolved]
